FAERS Safety Report 6648213-2 (Version None)
Quarter: 2010Q1

REPORT INFORMATION
  Report Type: 
  Country: None (occurrence: None)
  Receive Date: 20100324
  Receipt Date: 20100318
  Transmission Date: 20100710
  Serious: Yes (Hospitalization)
  Sender: FDA-Public Use
  Company Number: ES-B.I. PHARMACEUTICALS,INC./RIDGEFIELD-2010-ES-00047ES

PATIENT
  Age: 72 Year
  Sex: Male

DRUGS (8)
  1. SPIRIVA [Suspect]
     Indication: CHRONIC OBSTRUCTIVE PULMONARY DISEASE
     Dosage: 18 MCG
     Route: 055
     Dates: start: 20090101
  2. CISPLATIN [Suspect]
     Indication: LUNG NEOPLASM MALIGNANT
     Route: 042
     Dates: start: 20091130, end: 20091228
  3. GEMCITABINE HCL [Suspect]
     Indication: LUNG NEOPLASM MALIGNANT
     Route: 042
     Dates: start: 20091130, end: 20091228
  4. ACETILCISTEINE [Suspect]
     Indication: CHRONIC OBSTRUCTIVE PULMONARY DISEASE
     Dosage: 600 MG
     Route: 048
     Dates: start: 20090101
  5. IBUPROFEN [Suspect]
     Indication: PAIN
     Dosage: 600 MG
     Route: 048
     Dates: start: 20090101
  6. METFORMIN HCL [Suspect]
     Route: 048
     Dates: start: 20090101
  7. OMNIC OCAS [Suspect]
     Dosage: 0.4 MG
     Route: 048
     Dates: start: 20090101
  8. ALOPURINOL [Concomitant]
     Dates: start: 20090101

REACTIONS (1)
  - RENAL FAILURE ACUTE [None]
